FAERS Safety Report 8612639-8 (Version None)
Quarter: 2012Q3

REPORT INFORMATION
  Report Type: 
  Country: None (occurrence: None)
  Receive Date: 20120822
  Receipt Date: 20110915
  Transmission Date: 20120928
  Serious: No
  Sender: FDA-Public Use
  Company Number: US-ASTRAZENECA-2011SE55928

PATIENT
  Sex: Female

DRUGS (2)
  1. SYMBICORT [Suspect]
     Dosage: 160/4.5 MCG
     Route: 055
  2. SYMBICORT [Suspect]
     Dosage: 160/4.5 MCG
     Route: 055
     Dates: start: 20110914

REACTIONS (3)
  - ERYTHEMA [None]
  - SUNBURN [None]
  - FEELING HOT [None]
